FAERS Safety Report 11826238 (Version 1)
Quarter: 2015Q4

REPORT INFORMATION
  Report Type: Spontaneous
  Country: NO (occurrence: NO)
  Receive Date: 20151211
  Receipt Date: 20151211
  Transmission Date: 20160305
  Serious: Yes (Congenital Anomaly)
  Sender: FDA-Public Use
  Company Number: PHHY2015NO160681

PATIENT
  Sex: Female

DRUGS (1)
  1. VOLTAREN [Suspect]
     Active Substance: DICLOFENAC SODIUM
     Indication: FOETAL EXPOSURE DURING PREGNANCY
     Dosage: MATERNAL DOSE (6 DOSES OF 50 MG 3 TIMES DAILY FOR 2 DAYS)
     Route: 064

REACTIONS (10)
  - Dilatation ventricular [Recovered/Resolved]
  - Ascites [Recovered/Resolved]
  - Tricuspid valve incompetence [Recovered/Resolved]
  - Right-to-left cardiac shunt [Recovering/Resolving]
  - Foetal exposure during pregnancy [Unknown]
  - Ductus arteriosus premature closure [Recovered/Resolved]
  - Face oedema [Unknown]
  - Premature baby [Recovering/Resolving]
  - Oedema [Recovered/Resolved]
  - Cyanosis [Unknown]
